FAERS Safety Report 24909563 (Version 1)
Quarter: 2025Q1

REPORT INFORMATION
  Report Type: Spontaneous
  Country: CN (occurrence: CN)
  Receive Date: 20250131
  Receipt Date: 20250131
  Transmission Date: 20250408
  Serious: Yes (Death, Life-Threatening, Hospitalization)
  Sender: ACCORD
  Company Number: CN-MLMSERVICE-20250116-PI361312-00232-11

PATIENT
  Age: 62 Month
  Sex: Female

DRUGS (2)
  1. MYCOPHENOLATE MOFETIL [Suspect]
     Active Substance: MYCOPHENOLATE MOFETIL
     Indication: Immunosuppressant drug therapy
     Dosage: DISPERSIBLE TABLETS: 250 MG, 1/12 H
  2. TACROLIMUS [Suspect]
     Active Substance: TACROLIMUS
     Indication: Immunosuppressant drug therapy
     Dosage: CAPSULES: 1.5 MG, 1/12 H

REACTIONS (6)
  - Peripheral T-cell lymphoma unspecified [Fatal]
  - Epstein-Barr virus associated lymphoproliferative disorder [Fatal]
  - Haemophagocytic lymphohistiocytosis [Fatal]
  - Myelosuppression [Fatal]
  - Pleural effusion [Fatal]
  - Pneumatosis intestinalis [Fatal]
